FAERS Safety Report 8501103-2 (Version None)
Quarter: 2012Q2

REPORT INFORMATION
  Report Type: 
  Country: None (occurrence: None)
  Receive Date: 20120629
  Receipt Date: 20120621
  Transmission Date: 20120825
  Serious: Yes (Other)
  Sender: FDA-Public Use
  Company Number: 2012AP001354

PATIENT
  Age: 63 Year
  Sex: Male

DRUGS (20)
  1. CEFTAZIDIME [Concomitant]
  2. CEFEPIME [Concomitant]
  3. CYCLOSPORINE [Concomitant]
  4. IPRATROPIUM BROMIDE [Concomitant]
  5. METOPROLOL TARTRATE [Concomitant]
  6. EZETIMIBE [Concomitant]
  7. PREDNISONE [Concomitant]
  8. AZATHIOPRINE [Concomitant]
  9. ARFORMOTEROL TARTRATE [Concomitant]
  10. OMEPRAZOLE [Concomitant]
  11. ITRACONAZOLE [Concomitant]
  12. CIPROFLOXACIN [Suspect]
     Indication: PSEUDOMONAS INFECTION
     Dosage: 500 MG;BID; 500 MG;BID;
     Dates: start: 20100101
  13. CIPROFLOXACIN [Suspect]
     Indication: BRONCHIECTASIS
     Dosage: 500 MG;BID; 500 MG;BID;
     Dates: start: 20100101
  14. CIPROFLOXACIN [Suspect]
     Indication: PSEUDOMONAS INFECTION
     Dosage: 500 MG;BID; 500 MG;BID;
     Dates: start: 20110301
  15. CIPROFLOXACIN [Suspect]
     Indication: BRONCHIECTASIS
     Dosage: 500 MG;BID; 500 MG;BID;
     Dates: start: 20110301
  16. CIPROFLOXACIN [Suspect]
     Indication: PSEUDOMONAS INFECTION
     Dosage: 500 MG;BID; 500 MG;BID;
     Dates: start: 20110401, end: 20110526
  17. CIPROFLOXACIN [Suspect]
     Indication: BRONCHIECTASIS
     Dosage: 500 MG;BID; 500 MG;BID;
     Dates: start: 20110401, end: 20110526
  18. CIPROFLOXACIN [Suspect]
     Indication: PSEUDOMONAS INFECTION
     Dosage: 500 MG;BID; 500 MG;BID;
     Dates: start: 20100901
  19. CIPROFLOXACIN [Suspect]
     Indication: BRONCHIECTASIS
     Dosage: 500 MG;BID; 500 MG;BID;
     Dates: start: 20100901
  20. SULFAMETHOXAZOLE AND TRIMETHOPRIM [Concomitant]

REACTIONS (9)
  - FATIGUE [None]
  - BACK PAIN [None]
  - MUSCULAR WEAKNESS [None]
  - PAIN IN EXTREMITY [None]
  - BLOOD POTASSIUM INCREASED [None]
  - MYALGIA [None]
  - ARTHRALGIA [None]
  - RENAL FAILURE ACUTE [None]
  - MUSCULOSKELETAL PAIN [None]
